FAERS Safety Report 11272343 (Version 1)
Quarter: 2015Q3

REPORT INFORMATION
  Report Type: Spontaneous
  Country: US (occurrence: None)
  Receive Date: 20150713
  Receipt Date: 20150713
  Transmission Date: 20151125
  Serious: No
  Sender: FDA-Public Use
  Company Number: 2014-00010

PATIENT
  Sex: Female

DRUGS (1)
  1. ZICAM COLD REMEDY NASAL SWABS (ZINC) [Suspect]
     Active Substance: ZINC ACETATE\ZINC GLUCONATE

REACTIONS (1)
  - Hyposmia [None]
